FAERS Safety Report 19066019 (Version 1)
Quarter: 2021Q1

REPORT INFORMATION
  Report Type: Report from Study
  Country: BR (occurrence: BR)
  Receive Date: 20210327
  Receipt Date: 20210327
  Transmission Date: 20210420
  Serious: Yes (Other)
  Sender: FDA-Public Use
  Company Number: BR-TAKEDA-2021TUS018465

PATIENT
  Sex: Male

DRUGS (1)
  1. HEMO?8R [Suspect]
     Active Substance: ANTIHEMOPHILIC FACTOR, HUMAN RECOMBINANT
     Indication: FACTOR VIII DEFICIENCY
     Dosage: 2000 INTERNATIONAL UNIT, 3/WEEK
     Route: 042

REACTIONS (4)
  - Infection [Recovered/Resolved]
  - Appendicitis [Recovered/Resolved with Sequelae]
  - Laparotomy [Recovered/Resolved with Sequelae]
  - Abdominal pain lower [Not Recovered/Not Resolved]
